FAERS Safety Report 4372889-6 (Version None)
Quarter: 2004Q2

REPORT INFORMATION
  Report Type: 
  Country: None (occurrence: None)
  Receive Date: 20040603
  Receipt Date: 20040519
  Transmission Date: 20050107
  Serious: Yes (Other)
  Sender: FDA-Public Use
  Company Number: 190176

PATIENT
  Age: 37 Year
  Sex: Male

DRUGS (3)
  1. AVONEX [Suspect]
     Indication: MULTIPLE SCLEROSIS
     Dosage: 30 MCG QW IM
     Route: 030
     Dates: start: 20020111, end: 20030901
  2. ZOLOFT [Concomitant]
  3. BACLOFEN [Concomitant]

REACTIONS (4)
  - ADRENAL MASS [None]
  - LYMPHADENOPATHY [None]
  - METASTASES TO LUNG [None]
  - TESTICULAR GERM CELL CANCER [None]
